FAERS Safety Report 16325545 (Version 1)
Quarter: 2019Q2

REPORT INFORMATION
  Report Type: Spontaneous
  Country: US (occurrence: US)
  Receive Date: 20190516
  Receipt Date: 20190516
  Transmission Date: 20190711
  Serious: No
  Sender: FDA-Public Use
  Company Number: None

PATIENT
  Age: 42 Year
  Sex: Female
  Weight: 110.25 kg

DRUGS (3)
  1. MAGNESIUM [Concomitant]
     Active Substance: MAGNESIUM
  2. AJOVY [Suspect]
     Active Substance: FREMANEZUMAB-VFRM
     Indication: MIGRAINE
     Dosage: ?          QUANTITY:1 INJECTION(S);OTHER FREQUENCY:ONCE A MONTH;?
     Route: 058
     Dates: start: 20190327, end: 20190515
  3. CREON [Concomitant]
     Active Substance: PANCRELIPASE AMYLASE\PANCRELIPASE LIPASE\PANCRELIPASE PROTEASE

REACTIONS (16)
  - Acne [None]
  - Influenza like illness [None]
  - Anxiety [None]
  - Myalgia [None]
  - Blood pressure increased [None]
  - Lethargy [None]
  - Gastrointestinal disorder [None]
  - Dizziness [None]
  - Dyspnoea [None]
  - Hypoaesthesia [None]
  - Migraine [None]
  - Neuralgia [None]
  - Chest pain [None]
  - Palpitations [None]
  - Irritability [None]
  - Nausea [None]

NARRATIVE: CASE EVENT DATE: 20190516
